FAERS Safety Report 6046446-X (Version None)
Quarter: 2009Q1

REPORT INFORMATION
  Report Type: 
  Country: None (occurrence: None)
  Receive Date: 20090122
  Receipt Date: 20090118
  Transmission Date: 20090719
  Serious: Yes (Life-Threatening, Hospitalization, Other)
  Sender: FDA-Public Use
  Company Number: IN-ELI_LILLY_AND_COMPANY-IN200901002882

PATIENT
  Sex: Female

DRUGS (1)
  1. GEMCITE [Suspect]
     Indication: PANCREATIC CARCINOMA
     Dosage: UNK, UNKNOWN
     Route: 042

REACTIONS (3)
  - METASTASIS [None]
  - PLEURAL EFFUSION [None]
  - PULMONARY EMBOLISM [None]
